FAERS Safety Report 4969827-1 (Version None)
Quarter: 2006Q2

REPORT INFORMATION
  Report Type: 
  Country: None (occurrence: None)
  Receive Date: 20060411
  Receipt Date: 20050930
  Transmission Date: 20061013
  Serious: Yes (Other)
  Sender: FDA-Public Use
  Company Number: US-MERCK-0510USA01404

PATIENT
  Age: 37 Year
  Sex: Female
  Weight: 113 kg

DRUGS (1)
  1. VIOXX [Suspect]
     Route: 048

REACTIONS (7)
  - CARDIAC DISORDER [None]
  - CARDIAC VALVE DISEASE [None]
  - CARDIOVASCULAR DISORDER [None]
  - CEREBROVASCULAR ACCIDENT [None]
  - DEPRESSION [None]
  - MYOCARDIAL INFARCTION [None]
  - PULMONARY EMBOLISM [None]
